FAERS Safety Report 9468788 (Version 1)
Quarter: 2013Q3

REPORT INFORMATION
  Report Type: Spontaneous
  Country: US (occurrence: None)
  Receive Date: 20130814
  Receipt Date: 20130814
  Transmission Date: 20140515
  Serious: Yes (Hospitalization, Other)
  Sender: FDA-Public Use
  Company Number: BR13-248-AE

PATIENT
  Age: 60 Year
  Sex: Male
  Weight: 93 kg

DRUGS (13)
  1. SPIRONOLACTONE [Suspect]
     Indication: HEPATITIS C
     Dosage: 1 TABLET QD, ORAL
     Route: 048
     Dates: start: 20130612
  2. CIPROFLOXACIN [Concomitant]
  3. COLACE [Concomitant]
  4. FISH OIL -OMEGA 3 ACID ETHYL [Concomitant]
  5. KRISTALOSE - LACTULOSE [Concomitant]
  6. LEVOTHYROXINE [Concomitant]
  7. LYRICA (PREGABALIN) [Concomitant]
  8. LASIX - FUROSEMIDE [Concomitant]
  9. MELATONIN (MELATONIN CAPSULE) [Concomitant]
  10. MILK THISTLE (MILK THISTLE) [Concomitant]
  11. VITAMINS [Concomitant]
  12. MYFORTIC (MYCOPHENOLATE) [Concomitant]
  13. NEXIUM (ESOMEPRAZOLE) [Concomitant]

REACTIONS (3)
  - Hepatic failure [None]
  - Renal disorder [None]
  - Blood creatinine increased [None]
